FAERS Safety Report 16661699 (Version 1)
Quarter: 2019Q3

REPORT INFORMATION
  Report Type: Spontaneous
  Country: NL (occurrence: NL)
  Receive Date: 20190802
  Receipt Date: 20190802
  Transmission Date: 20191004
  Serious: Yes (Other)
  Sender: FDA-Public Use
  Company Number: NL-PFIZER INC-2019323612

PATIENT
  Age: 60 Year
  Sex: Female
  Weight: 63 kg

DRUGS (7)
  1. TRAZODON [Suspect]
     Active Substance: TRAZODONE HYDROCHLORIDE
     Indication: DEPRESSION
     Dosage: 1 DF, 1X/DAY (IN COMBINATION WITH VENLAFAXINE)
     Route: 050
     Dates: start: 20181019, end: 20190623
  2. VENLAFAXINE HCL [Suspect]
     Active Substance: VENLAFAXINE HYDROCHLORIDE
     Dosage: 150 MG, UNK
  3. VITAMIN B12 [Concomitant]
     Active Substance: CYANOCOBALAMIN
     Dosage: UNK
  4. TRAZODON [Suspect]
     Active Substance: TRAZODONE HYDROCHLORIDE
     Indication: POST-TRAUMATIC STRESS DISORDER
  5. VENLAFAXINE HCL [Suspect]
     Active Substance: VENLAFAXINE HYDROCHLORIDE
     Dosage: 225 MG, UNK
  6. TRAZODON [Suspect]
     Active Substance: TRAZODONE HYDROCHLORIDE
     Indication: BURNOUT SYNDROME
  7. TRAZODON [Suspect]
     Active Substance: TRAZODONE HYDROCHLORIDE
     Indication: PANIC ATTACK

REACTIONS (9)
  - Vitamin B6 increased [Unknown]
  - Alopecia [Not Recovered/Not Resolved]
  - Dry mouth [Not Recovered/Not Resolved]
  - Blood folate increased [Unknown]
  - Depression [Unknown]
  - Dry skin [Not Recovered/Not Resolved]
  - Neuropathy peripheral [Not Recovered/Not Resolved]
  - Serotonin syndrome [Unknown]
  - Dental caries [Not Recovered/Not Resolved]

NARRATIVE: CASE EVENT DATE: 20190311
